FAERS Safety Report 5911322-7 (Version None)
Quarter: 2008Q4

REPORT INFORMATION
  Report Type: 
  Country: None (occurrence: None)
  Receive Date: 20081007
  Receipt Date: 20080930
  Transmission Date: 20090506
  Serious: No
  Sender: FDA-Public Use
  Company Number: US-B.I. PHARMACEUTICALS,INC./RIDGEFIELD-2008-BP-14301BP

PATIENT
  Sex: Female

DRUGS (9)
  1. SPIRIVA [Suspect]
     Indication: CHRONIC OBSTRUCTIVE PULMONARY DISEASE
     Dates: start: 20060101
  2. SPIRIVA [Suspect]
     Indication: ASTHMA
  3. ALBUTEROL SULFATE [Concomitant]
  4. SYNTHROID [Concomitant]
  5. CARTIA XT [Concomitant]
  6. ACTOS [Concomitant]
  7. METFORMIN HCL [Concomitant]
  8. UNIPHYL [Concomitant]
  9. ALBUTEROL [Concomitant]
     Route: 055

REACTIONS (2)
  - ASTHMA [None]
  - THROAT TIGHTNESS [None]
